FAERS Safety Report 19574059 (Version 3)
Quarter: 2021Q3

REPORT INFORMATION
  Report Type: Report from Study
  Country: None (occurrence: US)
  Receive Date: 20210718
  Receipt Date: 20210818
  Transmission Date: 20211014
  Serious: No
  Sender: FDA-Public Use
  Company Number: US-ABBVIE-21K-163-3989303-00

PATIENT
  Age: 64 Year
  Sex: Female
  Weight: 54.48 kg

DRUGS (3)
  1. JANSSEN COVID?19 VACCINE [Suspect]
     Active Substance: AD26.COV2.S
     Indication: COVID-19 IMMUNISATION
     Dosage: JOHNSON AND JOHNSON
     Route: 030
     Dates: start: 20210524, end: 20210524
  2. SKYRIZI [Suspect]
     Active Substance: RISANKIZUMAB-RZAA
     Indication: PSORIASIS
  3. SKYRIZI [Suspect]
     Active Substance: RISANKIZUMAB-RZAA
     Indication: PSORIASIS
     Dosage: MORE THAN 1 YEAR
     Route: 058

REACTIONS (5)
  - Injection site pain [Recovered/Resolved]
  - Nerve compression [Not Recovered/Not Resolved]
  - Pain in extremity [Recovered/Resolved]
  - Intervertebral disc protrusion [Unknown]
  - Vaccination site pain [Recovered/Resolved]

NARRATIVE: CASE EVENT DATE: 2020
